FAERS Safety Report 13990111 (Version 1)
Quarter: 2017Q3

REPORT INFORMATION
  Report Type: Spontaneous
  Country: GB (occurrence: GB)
  Receive Date: 20170920
  Receipt Date: 20170920
  Transmission Date: 20171128
  Serious: Yes (Hospitalization, Other)
  Sender: FDA-Public Use
  Company Number: GB-PFIZER INC-2017403155

PATIENT
  Age: 58 Year
  Sex: Female
  Weight: 85 kg

DRUGS (5)
  1. FUROSEMIDE. [Concomitant]
     Active Substance: FUROSEMIDE
     Dosage: UNK
  2. FERROUS SULFATE. [Concomitant]
     Active Substance: FERROUS SULFATE
     Dosage: UNK
  3. CELEBREX [Suspect]
     Active Substance: CELECOXIB
     Indication: ARTHRITIS
     Dosage: 1 OR 2 CAPSULES DAILY
     Route: 048
     Dates: start: 200406, end: 20050205
  4. CELEBREX [Suspect]
     Active Substance: CELECOXIB
     Indication: OSTEOARTHRITIS
  5. QUININE [Concomitant]
     Active Substance: QUININE
     Dosage: UNK

REACTIONS (4)
  - Hemiparesis [Unknown]
  - Cerebrovascular accident [Not Recovered/Not Resolved]
  - Blood pressure systolic decreased [Unknown]
  - Aphasia [Not Recovered/Not Resolved]

NARRATIVE: CASE EVENT DATE: 200406
